FAERS Safety Report 11501604 (Version 2)
Quarter: 2016Q4

REPORT INFORMATION
  Report Type: Spontaneous
  Country: US (occurrence: US)
  Receive Date: 20150914
  Receipt Date: 20161220
  Transmission Date: 20170206
  Serious: Yes (Hospitalization, Other)
  Sender: FDA-Public Use
  Company Number: US-GLAXOSMITHKLINE-US2015GSK130811

PATIENT
  Age: 31 Year
  Sex: Female

DRUGS (6)
  1. NAPROXEN. [Concomitant]
     Active Substance: NAPROXEN
  2. BENLYSTA [Suspect]
     Active Substance: BELIMUMAB
     Indication: SYSTEMIC LUPUS ERYTHEMATOSUS
     Dosage: UNK UNK, CYC
     Route: 042
     Dates: start: 2014, end: 20150818
  3. FOLIC ACID. [Concomitant]
     Active Substance: FOLIC ACID
  4. METHOTREXATE. [Concomitant]
     Active Substance: METHOTREXATE
  5. PREDNISONE. [Concomitant]
     Active Substance: PREDNISONE
  6. PLAQUENIL [Concomitant]
     Active Substance: HYDROXYCHLOROQUINE SULFATE

REACTIONS (11)
  - Migraine [Not Recovered/Not Resolved]
  - Facial pain [Not Recovered/Not Resolved]
  - Nausea [Not Recovered/Not Resolved]
  - Nuclear magnetic resonance imaging brain normal [Unknown]
  - Overdose [Unknown]
  - Dysarthria [Not Recovered/Not Resolved]
  - Inflammation [Not Recovered/Not Resolved]
  - Hypoaesthesia [Not Recovered/Not Resolved]
  - Hospitalisation [Unknown]
  - Dizziness [Not Recovered/Not Resolved]
  - Bradyphrenia [Not Recovered/Not Resolved]

NARRATIVE: CASE EVENT DATE: 20150821
